FAERS Safety Report 8310127-X (Version None)
Quarter: 2012Q2

REPORT INFORMATION
  Report Type: 
  Country: None (occurrence: None)
  Receive Date: 20120425
  Receipt Date: 20120410
  Transmission Date: 20120825
  Serious: Yes (Hospitalization)
  Sender: FDA-Public Use
  Company Number: GB-INCYTE CORPORATION-2012IN000649

PATIENT
  Sex: Male

DRUGS (2)
  1. INC424 [Suspect]
     Dosage: UNK
     Route: 048
     Dates: start: 20120413
  2. INC424 [Suspect]
     Indication: MYELOFIBROSIS
     Dosage: 20 MG, QD
     Route: 048
     Dates: start: 20120201, end: 20120401

REACTIONS (1)
  - ANGINA UNSTABLE [None]
